FAERS Safety Report 9216321 (Version 2)
Quarter: 2013Q2

REPORT INFORMATION
  Report Type: Report from Study
  Country: BR (occurrence: BR)
  Receive Date: 20130408
  Receipt Date: 20130626
  Transmission Date: 20140414
  Serious: Yes (Other)
  Sender: FDA-Public Use
  Company Number: PHHY2013BR033468

PATIENT
  Sex: Female
  Weight: 60 kg

DRUGS (5)
  1. ACLASTA [Suspect]
     Indication: OSTEOPOROSIS
     Dosage: 5 MG/100ML, UNK
     Route: 042
     Dates: start: 201301
  2. TORLOS-H [Concomitant]
     Dosage: UNK
  3. DEPURA [Concomitant]
     Dosage: UNK
  4. OMEPRAZOLE [Concomitant]
     Dosage: UNK
  5. LEXAPRO [Concomitant]
     Dosage: UNK

REACTIONS (8)
  - Urinary tract infection [Recovered/Resolved]
  - Syncope [Recovered/Resolved]
  - Malaise [Unknown]
  - Asthenia [Recovered/Resolved]
  - Tremor [Recovered/Resolved]
  - Arthralgia [Recovering/Resolving]
  - Abdominal pain upper [Recovered/Resolved]
  - Vomiting [Recovered/Resolved]
